FAERS Safety Report 16730677 (Version 2)
Quarter: 2019Q3

REPORT INFORMATION
  Report Type: Spontaneous
  Country: US (occurrence: US)
  Receive Date: 20190822
  Receipt Date: 20190924
  Transmission Date: 20191005
  Serious: No
  Sender: FDA-Public Use
  Company Number: US-TAKEDA-2019TUS049083

PATIENT
  Age: 81 Year
  Sex: Female

DRUGS (1)
  1. NINLARO [Suspect]
     Active Substance: IXAZOMIB CITRATE
     Indication: PLASMA CELL MYELOMA
     Dosage: 2.3 MILLIGRAM
     Route: 048
     Dates: start: 20190412

REACTIONS (6)
  - Diarrhoea [Unknown]
  - Malaise [Unknown]
  - Epistaxis [Unknown]
  - Thrombosis in device [Unknown]
  - Fistula [Unknown]
  - Dizziness [Unknown]

NARRATIVE: CASE EVENT DATE: 20190818
